FAERS Safety Report 5731385-1 (Version None)
Quarter: 2008Q2

REPORT INFORMATION
  Report Type: 
  Country: None (occurrence: None)
  Receive Date: 20080508
  Receipt Date: 20080501
  Transmission Date: 20081010
  Serious: Yes (Other)
  Sender: FDA-Public Use
  Company Number: US-JNJFOC-20080202853

PATIENT
  Sex: Female
  Weight: 81.65 kg

DRUGS (5)
  1. DURAGESIC-100 [Suspect]
     Route: 062
  2. DURAGESIC-100 [Suspect]
     Indication: COMPLEX REGIONAL PAIN SYNDROME
     Route: 062
  3. LYRICA [Concomitant]
     Indication: COMPLEX REGIONAL PAIN SYNDROME
     Route: 048
  4. CELEXA [Concomitant]
     Indication: DEPRESSION
     Route: 048
  5. ACTONEL [Concomitant]
     Indication: OSTEOPOROSIS
     Route: 048

REACTIONS (2)
  - HYPERHIDROSIS [None]
  - MYOCLONUS [None]
